FAERS Safety Report 9689123 (Version 2)
Quarter: 2013Q4

REPORT INFORMATION
  Report Type: Spontaneous
  Country: US (occurrence: US)
  Receive Date: 20131114
  Receipt Date: 20131221
  Transmission Date: 20140711
  Serious: Yes (Hospitalization)
  Sender: FDA-Public Use
  Company Number: US-ASTRAZENECA-2013SE82344

PATIENT
  Age: 43 Year
  Sex: Female
  Weight: 73.5 kg

DRUGS (5)
  1. BRILINTA [Suspect]
     Indication: CORONARY ARTERIAL STENT INSERTION
     Route: 048
     Dates: start: 20131025, end: 20131026
  2. ATENOLOL [Suspect]
     Route: 048
     Dates: start: 2011
  3. LISINOPRIL [Suspect]
     Route: 048
     Dates: start: 2011
  4. ASA [Concomitant]
     Dates: start: 2011
  5. ISOSORBIDE ER [Concomitant]
     Dates: start: 2011

REACTIONS (6)
  - Visual impairment [Unknown]
  - Myocardial infarction [Recovered/Resolved]
  - Haemorrhage intracranial [Recovering/Resolving]
  - Headache [Unknown]
  - Nausea [Unknown]
  - Vomiting [Unknown]
